FAERS Safety Report 18126813 (Version 2)
Quarter: 2020Q3

REPORT INFORMATION
  Report Type: Report from Study
  Country: None (occurrence: US)
  Receive Date: 20200809
  Receipt Date: 20200825
  Transmission Date: 20201103
  Serious: No
  Sender: FDA-Public Use
  Company Number: US-ABBVIE-20K-163-3506306-00

PATIENT
  Age: 29 Year
  Sex: Female
  Weight: 90.8 kg

DRUGS (9)
  1. KYLEENA [Concomitant]
     Active Substance: LEVONORGESTREL
     Indication: UTERINE HAEMORRHAGE
     Route: 015
     Dates: start: 20190215, end: 202001
  2. PROVERA [Concomitant]
     Active Substance: MEDROXYPROGESTERONE ACETATE
     Indication: UTERINE SPASM
     Route: 048
     Dates: start: 20200603, end: 20200720
  3. NORETHINDRONE. [Concomitant]
     Active Substance: NORETHINDRONE
     Indication: UTERINE SPASM
  4. ORILISSA [Suspect]
     Active Substance: ELAGOLIX SODIUM
     Indication: ENDOMETRIOSIS
     Route: 048
     Dates: start: 20200518, end: 20200525
  5. PROVERA [Concomitant]
     Active Substance: MEDROXYPROGESTERONE ACETATE
     Indication: UTERINE HAEMORRHAGE
     Route: 048
     Dates: start: 20200217, end: 20200518
  6. ORILISSA [Suspect]
     Active Substance: ELAGOLIX SODIUM
     Indication: UTERINE HAEMORRHAGE
  7. ORILISSA [Suspect]
     Active Substance: ELAGOLIX SODIUM
     Indication: UTERINE SPASM
  8. NORETHINDRONE. [Concomitant]
     Active Substance: NORETHINDRONE
     Indication: UTERINE HAEMORRHAGE
     Route: 048
     Dates: start: 20200720
  9. KYLEENA [Concomitant]
     Active Substance: LEVONORGESTREL
     Indication: UTERINE SPASM

REACTIONS (3)
  - Pelvic pain [Not Recovered/Not Resolved]
  - Depression [Not Recovered/Not Resolved]
  - Vaginal haemorrhage [Not Recovered/Not Resolved]

NARRATIVE: CASE EVENT DATE: 20200521
